FAERS Safety Report 8514289-0 (Version None)
Quarter: 2012Q3

REPORT INFORMATION
  Report Type: 
  Country: None (occurrence: None)
  Receive Date: 20120717
  Receipt Date: 20120710
  Transmission Date: 20120928
  Serious: Yes (Death, Other)
  Sender: FDA-Public Use
  Company Number: US-JNJFOC-20120706020

PATIENT
  Sex: Female

DRUGS (6)
  1. DOXORUBICIN HCL [Suspect]
     Indication: MALIGNANT PERITONEAL NEOPLASM
     Dosage: EVERY 4 WEEKS; OVER 1 HOUR
     Route: 042
  2. PYRIDOXINE HCL [Suspect]
     Indication: PROPHYLAXIS
     Dosage: THE FIRST MORNING BEFORE THE PLD INFUSION AND TWICE DAILY THEREAFTER
     Route: 048
  3. DOXORUBICIN HCL [Suspect]
     Indication: ENDOMETRIAL CANCER
     Dosage: EVERY 4 WEEKS; OVER 1 HOUR
     Route: 042
  4. DOXORUBICIN HCL [Suspect]
     Indication: BREAST CANCER
     Dosage: EVERY 4 WEEKS; OVER 1 HOUR
     Route: 042
  5. DOXORUBICIN HCL [Suspect]
     Indication: OVARIAN CANCER RECURRENT
     Dosage: EVERY 4 WEEKS; OVER 1 HOUR
     Route: 042
  6. PLACEBO [Suspect]
     Indication: PROPHYLAXIS
     Dosage: THE FIRST MORNING BEFORE THE PLD INFUSION AND TWICE DAILY THEREAFTER
     Route: 048

REACTIONS (21)
  - LUNG DISORDER [None]
  - RENAL DISORDER [None]
  - GENERAL SYMPTOM [None]
  - LYMPHATIC DISORDER [None]
  - PALMAR-PLANTAR ERYTHRODYSAESTHESIA SYNDROME [None]
  - OVARIAN CANCER RECURRENT [None]
  - PANCREATIC DISORDER [None]
  - LIVER DISORDER [None]
  - ENDOMETRIAL CANCER [None]
  - BONE MARROW FAILURE [None]
  - BLOOD ALKALINE PHOSPHATASE INCREASED [None]
  - BREAST CANCER [None]
  - NEOPLASM MALIGNANT [None]
  - BLOOD DISORDER [None]
  - GASTROINTESTINAL DISORDER [None]
  - INFECTION [None]
  - PAIN [None]
  - MUSCULOSKELETAL DISORDER [None]
  - DEEP VEIN THROMBOSIS [None]
  - METABOLIC DISORDER [None]
  - NERVOUS SYSTEM DISORDER [None]
